FAERS Safety Report 9843946 (Version 1)
Quarter: 2013Q4

REPORT INFORMATION
  Report Type: Spontaneous
  Country: US (occurrence: None)
  Receive Date: 20131223
  Receipt Date: 20131223
  Transmission Date: 20140711
  Serious: No
  Sender: FDA-Public Use
  Company Number: 1000049546

PATIENT
  Age: 48 Year
  Sex: Female

DRUGS (6)
  1. LINZESS (LINACLOTIDE) (145 MICROGRAM, CAPSULES) [Suspect]
     Indication: CONSTIPATION
     Dosage: 435 MCG (345 MCG, 3 IN 1 D), ORAL
     Route: 048
     Dates: start: 20131001
  2. KLONOPIN [Concomitant]
  3. MIRTAZAPINE (MIRTAZAPINE) (MIRTAZAPINE) [Concomitant]
  4. SEROQUEL (QUETIAPINE FUMARATE) (QUETIAPINE FUMARATE) [Concomitant]
  5. DEXILANT (DEXLANSOPRAZOLE) (DEXLANSOPRAZOLE) [Concomitant]
  6. VICODIN (VICODIN) (VICODIN) [Concomitant]

REACTIONS (4)
  - Tremor [None]
  - Dizziness [None]
  - Prescribed overdose [None]
  - Diarrhoea [None]
